FAERS Safety Report 4989957-8 (Version None)
Quarter: 2006Q2

REPORT INFORMATION
  Report Type: 
  Country: None (occurrence: None)
  Receive Date: 20060428
  Receipt Date: 20060410
  Transmission Date: 20061013
  Serious: Yes (Death)
  Sender: FDA-Public Use
  Company Number: SE200604001413

PATIENT
  Sex: Male

DRUGS (1)
  1. ZYPREXA [Suspect]

REACTIONS (5)
  - HAEMORRHAGE [None]
  - HEAD INJURY [None]
  - LACERATION [None]
  - LISTLESS [None]
  - RESTLESSNESS [None]
